FAERS Safety Report 7943776-9 (Version None)
Quarter: 2011Q4

REPORT INFORMATION
  Report Type: 
  Country: None (occurrence: None)
  Receive Date: 20111128
  Receipt Date: 20111118
  Transmission Date: 20120403
  Serious: Yes (Death, Hospitalization)
  Sender: FDA-Public Use
  Company Number: DE-ROCHE-1014974

PATIENT
  Sex: Male
  Weight: 89 kg

DRUGS (2)
  1. PEMETREXED DISODIUM [Suspect]
     Indication: BRONCHIAL CARCINOMA
     Route: 065
  2. AVASTIN [Suspect]
     Indication: BRONCHIAL CARCINOMA
     Route: 065

REACTIONS (1)
  - NEOPLASM MALIGNANT [None]
